FAERS Safety Report 11065739 (Version 1)
Quarter: 2015Q2

REPORT INFORMATION
  Report Type: Spontaneous
  Country: TR (occurrence: TR)
  Receive Date: 20150425
  Receipt Date: 20150425
  Transmission Date: 20150821
  Serious: Yes (Life-Threatening, Hospitalization, Other)
  Sender: FDA-Public Use
  Company Number: TR-CIPLA LTD.-2015TR03236

PATIENT

DRUGS (7)
  1. RISPERIDONE. [Suspect]
     Active Substance: RISPERIDONE
     Indication: IRRITABILITY
  2. OLANZAPINE. [Concomitant]
     Active Substance: OLANZAPINE
     Indication: MENTAL RETARDATION
     Dosage: 10 MG, QD
  3. OLANZAPINE. [Concomitant]
     Active Substance: OLANZAPINE
     Indication: SELF INJURIOUS BEHAVIOUR
  4. QUETIAPINE [Suspect]
     Active Substance: QUETIAPINE
     Indication: IRRITABILITY
     Dosage: 600 MG, QD
  5. RISPERIDONE. [Suspect]
     Active Substance: RISPERIDONE
     Indication: INSOMNIA
     Dosage: 1 MG/DAY
  6. RISPERIDONE. [Suspect]
     Active Substance: RISPERIDONE
     Indication: SELF INJURIOUS BEHAVIOUR
  7. QUETIAPINE [Suspect]
     Active Substance: QUETIAPINE
     Indication: SELF INJURIOUS BEHAVIOUR

REACTIONS (6)
  - Oculogyric crisis [Unknown]
  - Pericardial effusion [Recovering/Resolving]
  - Irritability [Unknown]
  - Self injurious behaviour [Recovered/Resolved]
  - Agitation [None]
  - Neuroleptic malignant syndrome [Unknown]
